FAERS Safety Report 8202032-4 (Version None)
Quarter: 2012Q1

REPORT INFORMATION
  Report Type: 
  Country: None (occurrence: None)
  Receive Date: 20120312
  Receipt Date: 20120308
  Transmission Date: 20120608
  Serious: Yes (Hospitalization, Disabling, Other)
  Sender: FDA-Public Use
  Company Number: US-MERCK-1107USA02569

PATIENT
  Age: 52 Year
  Sex: Female
  Weight: 50 kg

DRUGS (9)
  1. CALCIUM (UNSPECIFIED) AND VITAMIN D (UNSPECIFIED) [Concomitant]
     Route: 065
     Dates: start: 19980101
  2. ESTROGENS (UNSPECIFIED) [Concomitant]
     Indication: MENOPAUSE
     Route: 065
     Dates: start: 19970101, end: 20091101
  3. PROGESTIN INJ [Concomitant]
     Indication: MENOPAUSE
     Route: 065
     Dates: start: 19970101, end: 20091101
  4. FOSAMAX [Suspect]
     Indication: OSTEOPOROSIS
     Route: 048
     Dates: start: 20010101, end: 20091116
  5. FOSAMAX [Suspect]
     Route: 065
     Dates: start: 19950101
  6. FOSAMAX [Suspect]
     Route: 048
     Dates: start: 19971001, end: 19971201
  7. FOSAMAX [Suspect]
     Route: 048
     Dates: start: 20000401, end: 20001001
  8. VITAMINS (UNSPECIFIED) [Concomitant]
     Route: 065
     Dates: start: 19980101
  9. FOSAMAX [Suspect]
     Route: 048
     Dates: start: 20080421, end: 20090917

REACTIONS (35)
  - PLANTAR FASCIITIS [None]
  - GAIT DISTURBANCE [None]
  - POST-TRAUMATIC STRESS DISORDER [None]
  - SPINAL OSTEOARTHRITIS [None]
  - ROSACEA [None]
  - RIGHT ATRIAL DILATATION [None]
  - GASTROOESOPHAGEAL REFLUX DISEASE [None]
  - FEMUR FRACTURE [None]
  - OSTEOARTHRITIS [None]
  - HAEMORRHOIDS [None]
  - STRESS FRACTURE [None]
  - SCOLIOSIS [None]
  - FALL [None]
  - FALLOPIAN TUBE DISORDER [None]
  - VITAMIN D DEFICIENCY [None]
  - LIMB ASYMMETRY [None]
  - NIGHTMARE [None]
  - ANAEMIA POSTOPERATIVE [None]
  - APPENDIX DISORDER [None]
  - ARTHROPATHY [None]
  - LIGAMENT SPRAIN [None]
  - ANXIETY [None]
  - FRACTURE NONUNION [None]
  - FIBROMYALGIA [None]
  - PANIC ATTACK [None]
  - INSOMNIA [None]
  - PANIC DISORDER WITHOUT AGORAPHOBIA [None]
  - MENOPAUSE [None]
  - DERMAL CYST [None]
  - POSTMENOPAUSAL HAEMORRHAGE [None]
  - DEVICE FAILURE [None]
  - DEPRESSION [None]
  - LOW TURNOVER OSTEOPATHY [None]
  - POST POLIO SYNDROME [None]
  - DIVERTICULUM [None]
